FAERS Safety Report 10925553 (Version 2)
Quarter: 2015Q2

REPORT INFORMATION
  Report Type: Report from Study
  Country: FI (occurrence: FI)
  Receive Date: 20150318
  Receipt Date: 20150610
  Transmission Date: 20150821
  Serious: Yes (Hospitalization, Other)
  Sender: FDA-Public Use
  Company Number: FI-ROCHE-1450756

PATIENT

DRUGS (1)
  1. RITUXIMAB [Suspect]
     Active Substance: RITUXIMAB
     Indication: RHEUMATOID ARTHRITIS
     Route: 065

REACTIONS (7)
  - Sepsis [Unknown]
  - Infectious colitis [Unknown]
  - Bronchitis [Unknown]
  - Tuberculosis [Unknown]
  - Erysipelas [Unknown]
  - Gastroenteritis [Unknown]
  - Neoplasm malignant [Unknown]
